FAERS Safety Report 4981804-3 (Version None)
Quarter: 2006Q2

REPORT INFORMATION
  Report Type: 
  Country: None (occurrence: None)
  Receive Date: 20060425
  Receipt Date: 20050120
  Transmission Date: 20061013
  Serious: Yes (Other)
  Sender: FDA-Public Use
  Company Number: CH-GLAXOSMITHKLINE-B0366026A

PATIENT
  Age: 42 Year
  Sex: Female

DRUGS (3)
  1. PAROXETINE HYDROCHLORIDE [Suspect]
     Dosage: 20MG PER DAY
     Route: 048
     Dates: start: 20040801
  2. CLONAZEPAM [Suspect]
     Dosage: 30DROP PER DAY
     Route: 065
     Dates: start: 20040801
  3. BROMAZEPAM [Suspect]
     Dosage: 1CAP PER DAY
     Route: 048
     Dates: start: 20040801

REACTIONS (2)
  - ABORTION INDUCED [None]
  - DRUG EXPOSURE DURING PREGNANCY [None]
